FAERS Safety Report 8571554 (Version 6)
Quarter: 2013Q3

REPORT INFORMATION
  Report Type: Spontaneous
  Country: US (occurrence: None)
  Receive Date: 20120514
  Receipt Date: 20130815
  Transmission Date: 20140515
  Serious: Yes (Other)
  Sender: FDA-Public Use
  Company Number: ADR-2012-00855

PATIENT
  Sex: Female

DRUGS (1)
  1. BACLOFEN [Suspect]
     Indication: PAIN

REACTIONS (15)
  - Muscle spasms [None]
  - Muscle tightness [None]
  - Incision site complication [None]
  - Speech disorder [None]
  - Headache [None]
  - Gastric disorder [None]
  - Sarcoidosis [None]
  - Pain in extremity [None]
  - Implant site pain [None]
  - Granuloma [None]
  - Blood pressure decreased [None]
  - Dizziness [None]
  - Hypotension [None]
  - Photopsia [None]
  - Underweight [None]
